FAERS Safety Report 21725842 (Version 1)
Quarter: 2022Q4

REPORT INFORMATION
  Report Type: Report from Study
  Country: US (occurrence: US)
  Receive Date: 20221214
  Receipt Date: 20221214
  Transmission Date: 20230113
  Serious: Yes (Death, Life-Threatening, Other)
  Sender: FDA-Public Use
  Company Number: US-SUN PHARMACEUTICAL INDUSTRIES LTD-2022R1-368526

PATIENT
  Age: 21 Year
  Sex: Male

DRUGS (1)
  1. QUETIAPINE [Suspect]
     Active Substance: QUETIAPINE
     Indication: Product used for unknown indication
     Dosage: UNK
     Route: 065

REACTIONS (9)
  - Death [Fatal]
  - Toxicity to various agents [Unknown]
  - Myocardial injury [Unknown]
  - Pneumonitis aspiration [Unknown]
  - Hepatotoxicity [Unknown]
  - Depressed level of consciousness [Unknown]
  - Cardiac arrest [Unknown]
  - Rhabdomyolysis [Unknown]
  - Acute kidney injury [Unknown]
